FAERS Safety Report 18393976 (Version 1)
Quarter: 2020Q4

REPORT INFORMATION
  Report Type: Spontaneous
  Country: FR (occurrence: FR)
  Receive Date: 20201016
  Receipt Date: 20201016
  Transmission Date: 20210114
  Serious: Yes (Other)
  Sender: FDA-Public Use
  Company Number: FR-MYLANLABS-2020M1087042

PATIENT
  Age: 53 Year
  Sex: Female

DRUGS (2)
  1. GEMCITABINE. [Suspect]
     Active Substance: GEMCITABINE
     Indication: NON-SMALL CELL LUNG CANCER
     Dosage: 1250 MILLIGRAM/SQ. METER, CYCLE (4 CYCLICAL)
  2. CISPLATIN. [Concomitant]
     Active Substance: CISPLATIN
     Indication: NON-SMALL CELL LUNG CANCER
     Dosage: UNK UNK, CYCLE (4 CYCLICAL)

REACTIONS (1)
  - Myelitis [Unknown]
